FAERS Safety Report 5742171-0 (Version None)
Quarter: 2008Q2

REPORT INFORMATION
  Report Type: 
  Country: None (occurrence: None)
  Receive Date: 20080519
  Receipt Date: 20080514
  Transmission Date: 20081010
  Serious: Yes (Death, Hospitalization)
  Sender: FDA-Public Use
  Company Number: SK-BRISTOL-MYERS SQUIBB COMPANY-14192470

PATIENT
  Age: 2 Year
  Sex: Male

DRUGS (6)
  1. ETOPOSIDE [Suspect]
     Indication: JUVENILE CHRONIC MYELOMONOCYTIC LEUKAEMIA
  2. ETOPOSIDE [Suspect]
     Indication: NEUROFIBROMATOSIS
  3. DEXAMETHASONE [Suspect]
     Indication: JUVENILE CHRONIC MYELOMONOCYTIC LEUKAEMIA
  4. DEXAMETHASONE [Suspect]
     Indication: NEUROFIBROMATOSIS
  5. CYCLOSPORINE [Suspect]
     Indication: IMMUNOSUPPRESSION
  6. CYCLOSPORINE [Suspect]
     Indication: NEUROFIBROMATOSIS

REACTIONS (6)
  - ALTERED STATE OF CONSCIOUSNESS [None]
  - HEPATOSPLENOMEGALY [None]
  - LIVER DISORDER [None]
  - MUCOSAL HAEMORRHAGE [None]
  - MULTI-ORGAN FAILURE [None]
  - PANCYTOPENIA [None]
